FAERS Safety Report 13933504 (Version 1)
Quarter: 2017Q3

REPORT INFORMATION
  Report Type: Spontaneous
  Country: FR (occurrence: FR)
  Receive Date: 20170904
  Receipt Date: 20170904
  Transmission Date: 20171127
  Serious: Yes (Death, Hospitalization, Other)
  Sender: FDA-Public Use
  Company Number: FR-BRISTOL-MYERS SQUIBB COMPANY-BMS-2017-077592

PATIENT
  Age: 77 Year
  Sex: Male
  Weight: 60 kg

DRUGS (1)
  1. OPDIVO [Suspect]
     Active Substance: NIVOLUMAB
     Indication: LUNG NEOPLASM MALIGNANT
     Dosage: 1 DF, UNK
     Route: 042
     Dates: start: 20160330, end: 20170516

REACTIONS (4)
  - General physical health deterioration [Fatal]
  - Superior vena cava syndrome [Unknown]
  - Autoimmune haemolytic anaemia [Recovering/Resolving]
  - Tracheal obstruction [Unknown]

NARRATIVE: CASE EVENT DATE: 20170503
